FAERS Safety Report 5449911-9 (Version None)
Quarter: 2007Q3

REPORT INFORMATION
  Report Type: 
  Country: None (occurrence: None)
  Receive Date: 20070907
  Receipt Date: 20070823
  Transmission Date: 20080115
  Serious: Yes (Disabling)
  Sender: FDA-Public Use
  Company Number: ANTA0700176

PATIENT
  Age: 85 Year
  Sex: Male
  Weight: 64.4 kg

DRUGS (10)
  1. FENOFIBRATE [Suspect]
     Indication: DRUG USE FOR UNKNOWN INDICATION
     Dosage: QD, ORAL
     Route: 048
     Dates: start: 20050101, end: 20051101
  2. COUMADIN [Concomitant]
  3. CORDARONE [Concomitant]
  4. DIGOXIN [Concomitant]
  5. ACCUPRIL [Concomitant]
  6. SIMVASTATIN [Concomitant]
  7. IRON (FERROUS SULFATE) [Concomitant]
  8. INSULIN (INSULIN) [Concomitant]
  9. ICAPS (MINERALS NOS, VITAMINS NOS) [Concomitant]
  10. ASPIRIN [Concomitant]

REACTIONS (3)
  - INTERNATIONAL NORMALISED RATIO INCREASED [None]
  - MACULAR DEGENERATION [None]
  - OCULAR HYPERAEMIA [None]
